FAERS Safety Report 9257438 (Version 3)
Quarter: 2013Q4

REPORT INFORMATION
  Report Type: Spontaneous
  Country: IT (occurrence: IT)
  Receive Date: 20130426
  Receipt Date: 20131206
  Transmission Date: 20140711
  Serious: Yes (Hospitalization)
  Sender: FDA-Public Use
  Company Number: IT-PFIZER INC-2013129276

PATIENT
  Age: 20 Year
  Sex: Female
  Weight: 55 kg

DRUGS (3)
  1. SOLU-MEDROL [Suspect]
     Indication: MULTIPLE SCLEROSIS
     Dosage: 1 G, AS NEEDED
     Route: 042
     Dates: start: 20130125, end: 20130130
  2. GILENYA [Interacting]
     Indication: MULTIPLE SCLEROSIS
     Dosage: 0.5 MG, 1X/DAY
     Route: 048
     Dates: start: 20121030, end: 20130222
  3. GABAPENTIN TEVA [Concomitant]
     Indication: PARAESTHESIA
     Dosage: 200 MG
     Route: 048
     Dates: start: 20130107, end: 20130212

REACTIONS (2)
  - Drug interaction [Unknown]
  - Herpes zoster [Recovered/Resolved]
